FAERS Safety Report 4631446-4 (Version None)
Quarter: 2005Q2

REPORT INFORMATION
  Report Type: 
  Country: None (occurrence: None)
  Receive Date: 20050407
  Receipt Date: 20050325
  Transmission Date: 20051028
  Serious: Yes (Hospitalization, Other)
  Sender: FDA-Public Use
  Company Number: 2005050721

PATIENT
  Age: 43 Year
  Sex: Female
  Weight: 73.4827 kg

DRUGS (7)
  1. XANAX [Suspect]
     Indication: GENERALISED ANXIETY DISORDER
     Dosage: SEE IMAGE
     Route: 048
     Dates: start: 19920101
  2. XANAX [Suspect]
     Indication: GENERALISED ANXIETY DISORDER
     Dosage: SEE IMAGE
     Route: 048
     Dates: start: 20050101
  3. VERAPAMIL HCL [Concomitant]
  4. LANSOPRAZOLE [Concomitant]
  5. OXYGEN (OXYGEN) [Concomitant]
  6. CITALOPRAM HYDROCHLORIDE (CITALOPRAM HYDROCHLORIDE) [Concomitant]
  7. ROFECOXIB [Concomitant]

REACTIONS (5)
  - HIP SURGERY [None]
  - MUSCULOSKELETAL STIFFNESS [None]
  - PAIN [None]
  - PARAESTHESIA [None]
  - TREMOR [None]
